FAERS Safety Report 8649813 (Version 2)
Quarter: 2013Q1

REPORT INFORMATION
  Report Type: Spontaneous
  Country: DE (occurrence: DE)
  Receive Date: 20120705
  Receipt Date: 20130304
  Transmission Date: 20140127
  Serious: Yes (Other)
  Sender: FDA-Public Use
  Company Number: DE-UCBSA-060746

PATIENT
  Age: 37 Year
  Sex: Female
  Weight: 90 kg

DRUGS (8)
  1. KEPPRA [Suspect]
     Dosage: 250 MG TAB, 8 TABLETS, TOTAL AMOUNT: 2,000MG
     Dates: start: 201206, end: 201206
  2. LEVETIRACETAM [Suspect]
     Dosage: 750, 40 TABLETS, TOTAL AMOUNT: 30,000 MG
     Dates: start: 201206, end: 201206
  3. DOXYLAMINE SUCCINATE [Suspect]
     Dosage: 25, 20 TABLETS, TOTAL AMOUNT: 500MG
     Dates: start: 201206, end: 201206
  4. LEVETIRACETAM [Suspect]
     Dosage: 500, 40 TABLETS, TOTAL AMOUNT: 20,000 MG
     Dates: start: 201206, end: 201206
  5. OPIPRAMOL [Suspect]
     Dosage: 86 TABLETS, UNKNOWN AMOUNT
     Dates: start: 201206, end: 201206
  6. DOMINAL [Suspect]
     Dosage: 31 TABLETS
     Dates: start: 201206, end: 201206
  7. TAVOR [Suspect]
     Dosage: 60 TABLETS
     Dates: start: 201206, end: 201206
  8. ZOPICLONE [Suspect]
     Dosage: 19 TABLETS
     Dates: start: 201206, end: 201206

REACTIONS (7)
  - Suicide attempt [Unknown]
  - Coma [Unknown]
  - Tachycardia [Unknown]
  - Ileus paralytic [Unknown]
  - Overdose [Unknown]
  - Pneumonia aspiration [Recovered/Resolved]
  - Compartment syndrome [Recovered/Resolved]
